FAERS Safety Report 4849938-1 (Version None)
Quarter: 2005Q4

REPORT INFORMATION
  Report Type: 
  Country: None (occurrence: None)
  Receive Date: 20051101
  Receipt Date: 20050830
  Transmission Date: 20060501
  Serious: Yes (Life-Threatening)
  Sender: FDA-Public Use
  Company Number: MK200508-0368-1

PATIENT
  Age: 46 Year
  Sex: Female
  Weight: 82.5547 kg

DRUGS (1)
  1. NEUTROSPEC [Suspect]
     Indication: ABSCESS
     Dosage: 20 MCI, ONE TIME, IV
     Route: 042
     Dates: start: 20050829, end: 20050829

REACTIONS (1)
  - OXYGEN SATURATION DECREASED [None]
